FAERS Safety Report 7814541-8 (Version None)
Quarter: 2011Q4

REPORT INFORMATION
  Report Type: 
  Country: None (occurrence: None)
  Receive Date: 20111012
  Receipt Date: 20111006
  Transmission Date: 20120403
  Serious: Yes (Other)
  Sender: FDA-Public Use
  Company Number: DKLU1073729

PATIENT
  Age: 21 Year
  Sex: Female

DRUGS (7)
  1. COSMEGEN [Suspect]
     Indication: NEPHROBLASTOMA
  2. CARBOPLATIN [Suspect]
     Indication: NEPHROBLASTOMA
  3. VINCRISTINE [Suspect]
     Indication: NEPHROBLASTOMA
  4. DOXORUBICIN HCL [Suspect]
     Indication: NEPHROBLASTOMA
  5. CYCLOPHOSPHAMIDE [Suspect]
     Indication: NEPHROBLASTOMA
  6. ETOPOSIDE [Suspect]
     Indication: NEPHROBLASTOMA
  7. THIOTEPA [Suspect]
     Indication: NEPHROBLASTOMA

REACTIONS (2)
  - FIBROCYSTIC BREAST DISEASE [None]
  - BREAST CANCER IN SITU [None]
